FAERS Safety Report 8918685 (Version 1)
Quarter: 2012Q4

REPORT INFORMATION
  Report Type: 
  Country: US (occurrence: US)
  Receive Date: 20121120
  Receipt Date: 20121120
  Transmission Date: 20130627
  Serious: Yes (Other)
  Sender: FDA-Public Use
  Company Number: US-ASTRAZENECA-2012SE28737

PATIENT
  Age: 54 Year
  Sex: Female
  Weight: 81.6 kg

DRUGS (8)
  1. NEXIUM [Suspect]
     Indication: DYSPEPSIA
     Route: 048
     Dates: start: 2005
  2. NEXIUM [Suspect]
     Indication: GASTRIC DISORDER
     Route: 048
     Dates: start: 2005
  3. KLONOPIN [Concomitant]
  4. DOPENEX [Concomitant]
     Dosage: AS REQUIRED
  5. LYRICA [Concomitant]
  6. VITAMINE D3 [Concomitant]
  7. VITAMIN B [Concomitant]
  8. TRAZIDONE [Concomitant]

REACTIONS (2)
  - Hip fracture [Unknown]
  - Arthralgia [Unknown]
